FAERS Safety Report 5620131-8 (Version None)
Quarter: 2008Q1

REPORT INFORMATION
  Report Type: 
  Country: None (occurrence: None)
  Receive Date: 20080208
  Receipt Date: 20080128
  Transmission Date: 20080703
  Serious: Yes (Other)
  Sender: FDA-Public Use
  Company Number: GB-ROCHE-544411

PATIENT
  Age: 62 Year
  Sex: Male
  Weight: 108 kg

DRUGS (2)
  1. ORLISTAT [Suspect]
     Indication: OBESITY
     Route: 048
     Dates: start: 20070811
  2. 1 CONCOMITANT DRUG [Concomitant]
     Indication: GOUT
     Dosage: DRUG NAME ALLOPERIDOL START DATE MORE THAN 5 YEARS AGO
     Route: 048
     Dates: start: 20030101

REACTIONS (1)
  - NEOPLASM MALIGNANT [None]
